FAERS Safety Report 18744664 (Version 1)
Quarter: 2021Q1

REPORT INFORMATION
  Report Type: Spontaneous
  Country: US (occurrence: US)
  Receive Date: 20210115
  Receipt Date: 20210115
  Transmission Date: 20210419
  Serious: Yes (Hospitalization, Other)
  Sender: FDA-Public Use
  Company Number: US-MICRO LABS LIMITED-ML2021-00074

PATIENT
  Age: 26 Year
  Sex: Female

DRUGS (1)
  1. BUPROPION. [Suspect]
     Active Substance: BUPROPION

REACTIONS (8)
  - Tachypnoea [Unknown]
  - Overdose [Unknown]
  - Automatism [Unknown]
  - Electrocardiogram QT prolonged [Recovered/Resolved]
  - Intestinal ischaemia [Recovered/Resolved]
  - Tachycardia [Unknown]
  - Mental status changes [Recovered/Resolved]
  - Nystagmus [Unknown]
